FAERS Safety Report 7407312-8 (Version None)
Quarter: 2011Q2

REPORT INFORMATION
  Report Type: 
  Country: None (occurrence: None)
  Receive Date: 20110411
  Receipt Date: 20110404
  Transmission Date: 20111010
  Serious: Yes (Hospitalization)
  Sender: FDA-Public Use
  Company Number: US-TEVA-274567USA

PATIENT
  Age: 82 Year
  Sex: Female

DRUGS (2)
  1. AMIODARONE HYDROCHLORIDE [Suspect]
     Indication: ATRIAL FIBRILLATION
     Dosage: 200 MILLIGRAM;
  2. AMITRIPTYLINE [Suspect]
     Indication: INSOMNIA
     Dosage: 50 MILLIGRAM;

REACTIONS (2)
  - DRUG INTERACTION [None]
  - EXTRAPYRAMIDAL DISORDER [None]
